FAERS Safety Report 7771138-6 (Version None)
Quarter: 2011Q3

REPORT INFORMATION
  Report Type: 
  Country: None (occurrence: None)
  Receive Date: 20110922
  Receipt Date: 20110915
  Transmission Date: 20111222
  Serious: Yes (Other)
  Sender: FDA-Public Use
  Company Number: FR-GENZYME-CAMP-1001873

PATIENT
  Sex: Female
  Weight: 57 kg

DRUGS (6)
  1. METHYLPREDNISOLONE [Concomitant]
     Indication: MULTIPLE SCLEROSIS
     Dosage: 1 G, QD
     Route: 042
     Dates: start: 20090202, end: 20090206
  2. ALEMTUZUMAB [Suspect]
     Dosage: 12 MG, QD
     Route: 042
     Dates: start: 20090202, end: 20090206
  3. VOGALENE [Concomitant]
     Indication: NAUSEA
     Dosage: 1 TABLET AS NEEDED
     Dates: start: 20110626, end: 20110718
  4. AMOXICILLIN TRIHYDRATE [Concomitant]
     Indication: PROPHYLAXIS
     Dosage: 2 G, QD
     Dates: start: 20110817, end: 20110819
  5. METHYLPREDNISOLONE [Concomitant]
     Dosage: 1 G, QD
     Route: 042
     Dates: start: 20100209, end: 20100211
  6. ALEMTUZUMAB [Suspect]
     Indication: MULTIPLE SCLEROSIS
     Dosage: 12 MG, QD
     Route: 042
     Dates: start: 20100209, end: 20100211

REACTIONS (1)
  - ABORTION SPONTANEOUS [None]
